FAERS Safety Report 16654330 (Version 1)
Quarter: 2019Q3

REPORT INFORMATION
  Report Type: Spontaneous
  Country: US (occurrence: US)
  Receive Date: 20190731
  Receipt Date: 20190731
  Transmission Date: 20191004
  Serious: No
  Sender: FDA-Public Use
  Company Number: US-LUNDBECK-DKLU3001068

PATIENT
  Sex: Female

DRUGS (1)
  1. NORTHERA [Suspect]
     Active Substance: DROXIDOPA
     Indication: AUTONOMIC NEUROPATHY
     Route: 048
     Dates: start: 20190710

REACTIONS (5)
  - Headache [Unknown]
  - Blood pressure increased [Unknown]
  - Dyskinesia [Unknown]
  - Muscle twitching [Unknown]
  - Muscular weakness [Unknown]
